FAERS Safety Report 19018189 (Version 1)
Quarter: 2021Q1

REPORT INFORMATION
  Report Type: Spontaneous
  Country: US (occurrence: US)
  Receive Date: 20210317
  Receipt Date: 20210317
  Transmission Date: 20210420
  Serious: Yes (Other)
  Sender: FDA-Public Use
  Company Number: US-ELI_LILLY_AND_COMPANY-US202103003834

PATIENT
  Age: 51 Year
  Sex: Male

DRUGS (1)
  1. BAMLANIVIMAB. [Suspect]
     Active Substance: BAMLANIVIMAB
     Indication: COVID-19
     Dosage: UNK UNK, UNKNOWN
     Route: 065
     Dates: start: 20210223, end: 20210223

REACTIONS (11)
  - Paranoia [Recovering/Resolving]
  - Headache [Recovering/Resolving]
  - Hallucination [Recovered/Resolved]
  - Nervousness [Recovering/Resolving]
  - Feeling jittery [Recovering/Resolving]
  - Eating disorder [Recovering/Resolving]
  - Chest discomfort [Recovered/Resolved]
  - Migraine [Recovering/Resolving]
  - Suicidal ideation [Recovered/Resolved]
  - Palpitations [Recovering/Resolving]
  - Disturbance in attention [Recovering/Resolving]

NARRATIVE: CASE EVENT DATE: 20210302
